FAERS Safety Report 20965418 (Version 1)
Quarter: 2022Q2

REPORT INFORMATION
  Report Type: Spontaneous
  Country: US (occurrence: US)
  Receive Date: 20220616
  Receipt Date: 20220616
  Transmission Date: 20220721
  Serious: No
  Sender: FDA-Public Use
  Company Number: US-NOVARTISTESTPH-NVSC2022US137840

PATIENT
  Age: 76 Year

DRUGS (1)
  1. LEQVIO [Suspect]
     Active Substance: INCLISIRAN SODIUM
     Indication: Low density lipoprotein abnormal
     Dosage: 284 MG, (INITIAL INJECTION, 90 DAY AND THEM EVERY)
     Route: 058

REACTIONS (1)
  - Bone pain [Recovering/Resolving]
